FAERS Safety Report 9437017 (Version 1)
Quarter: 2013Q3

REPORT INFORMATION
  Report Type: Spontaneous
  Country: US (occurrence: US)
  Receive Date: 20130802
  Receipt Date: 20130802
  Transmission Date: 20140515
  Serious: Yes (Other)
  Sender: FDA-Public Use
  Company Number: US-ENDO PHARMACEUTICALS INC.-OPCR20130307

PATIENT
  Sex: Male

DRUGS (1)
  1. OPANA ER 30MG [Suspect]
     Indication: DRUG ABUSE
     Dosage: UNKNOWN
     Route: 042
     Dates: start: 20130720

REACTIONS (9)
  - Skin haemorrhage [Recovered/Resolved]
  - Swelling face [Recovered/Resolved]
  - Heart rate increased [Not Recovered/Not Resolved]
  - Incorrect route of drug administration [Unknown]
  - Wrong technique in drug usage process [Unknown]
  - Drug abuse [Unknown]
  - Erythema [Recovered/Resolved]
  - Ocular hyperaemia [Recovered/Resolved]
  - Vomiting [Recovered/Resolved]
